FAERS Safety Report 19630360 (Version 1)
Quarter: 2021Q3

REPORT INFORMATION
  Report Type: Spontaneous
  Country: US (occurrence: US)
  Receive Date: 20210728
  Receipt Date: 20210728
  Transmission Date: 20211014
  Serious: No
  Sender: FDA-Public Use
  Company Number: US-SA-2021SA242855

PATIENT
  Sex: Male

DRUGS (6)
  1. JEVTANA [Suspect]
     Active Substance: CABAZITAXEL
     Indication: METASTATIC NEOPLASM
     Dosage: UNK
     Route: 065
  2. ADT [Concomitant]
     Active Substance: AMITRIPTYLINE HYDROCHLORIDE
     Indication: METASTATIC NEOPLASM
     Dosage: UNK
     Route: 065
  3. OLAPARIB. [Concomitant]
     Active Substance: OLAPARIB
     Indication: METASTATIC NEOPLASM
     Dosage: UNK
     Route: 065
  4. ABIRATERONE. [Concomitant]
     Active Substance: ABIRATERONE ACETATE
     Indication: METASTATIC NEOPLASM
     Dosage: UNK
     Route: 065
  5. DOCETAXEL. [Concomitant]
     Active Substance: DOCETAXEL
     Indication: METASTATIC NEOPLASM
     Route: 065
  6. PROVENGE [Concomitant]
     Active Substance: SIPULEUCEL-T
     Indication: METASTATIC NEOPLASM
     Dosage: UNK
     Route: 065

REACTIONS (1)
  - Disease progression [Unknown]
